FAERS Safety Report 8027138 (Version 5)
Quarter: 2013Q4

REPORT INFORMATION
  Report Type: Spontaneous
  Country: MX (occurrence: MX)
  Receive Date: 20110708
  Receipt Date: 20131031
  Transmission Date: 20140711
  Serious: Yes (Other)
  Sender: FDA-Public Use
  Company Number: MX-009507513-1107MEX00002

PATIENT
  Age: 8 Year
  Sex: Female
  Weight: 25 kg

DRUGS (2)
  1. SINGULAIR [Suspect]
     Indication: RHINITIS ALLERGIC
     Dosage: 5 MG, QD
     Route: 048
     Dates: start: 201104, end: 20110610
  2. AVAMYS [Concomitant]
     Indication: RHINITIS ALLERGIC
     Dosage: QD
     Route: 055
     Dates: start: 201104, end: 201105

REACTIONS (3)
  - Thrombotic thrombocytopenic purpura [Unknown]
  - Thrombocytopenia [Recovered/Resolved]
  - Immune thrombocytopenic purpura [Not Recovered/Not Resolved]
